FAERS Safety Report 16601781 (Version 1)
Quarter: 2019Q3

REPORT INFORMATION
  Report Type: Spontaneous
  Country: JP (occurrence: JP)
  Receive Date: 20190719
  Receipt Date: 20190719
  Transmission Date: 20191004
  Serious: Yes (Life-Threatening, Other)
  Sender: FDA-Public Use
  Company Number: JP-PFIZER INC-2019299770

PATIENT
  Sex: Female

DRUGS (2)
  1. VOLTAREN [DICLOFENAC] [Suspect]
     Active Substance: DICLOFENAC SODIUM
     Indication: DENTAL CARIES
     Dosage: UNK
     Dates: start: 20190622
  2. ZITHROMAC 250MG [Suspect]
     Active Substance: AZITHROMYCIN DIHYDRATE
     Indication: DENTAL CARIES
     Dosage: 2 DF, DAILY
     Route: 048
     Dates: start: 20190622

REACTIONS (4)
  - Weight decreased [Unknown]
  - Off label use [Unknown]
  - Enterocolitis haemorrhagic [Recovering/Resolving]
  - Product use in unapproved indication [Unknown]

NARRATIVE: CASE EVENT DATE: 20190622
